FAERS Safety Report 23058584 (Version 1)
Quarter: 2023Q4

REPORT INFORMATION
  Report Type: Spontaneous
  Country: US (occurrence: US)
  Receive Date: 20231012
  Receipt Date: 20231012
  Transmission Date: 20240110
  Serious: Yes (Other)
  Sender: FDA-Public Use
  Company Number: US-MYLANLABS-2023M1106721

PATIENT
  Sex: Female

DRUGS (4)
  1. TEMOZOLOMIDE [Suspect]
     Active Substance: TEMOZOLOMIDE
     Indication: Prolactin-producing pituitary tumour
     Dosage: UNK
     Route: 065
  2. EVEROLIMUS [Suspect]
     Active Substance: EVEROLIMUS
     Indication: Prolactin-producing pituitary tumour
     Dosage: 10 MILLIGRAM, QD
     Route: 065
  3. EVEROLIMUS [Suspect]
     Active Substance: EVEROLIMUS
     Dosage: 5 MILLIGRAM, QD
     Route: 065
  4. CABERGOLINE [Concomitant]
     Active Substance: CABERGOLINE
     Indication: Prolactin-producing pituitary tumour
     Dosage: 1.5 MILLIGRAM, BIWEEKLY
     Route: 065

REACTIONS (3)
  - Off label use [Unknown]
  - Drug ineffective for unapproved indication [Unknown]
  - Stomatitis [Unknown]
